FAERS Safety Report 4431069-6 (Version None)
Quarter: 2004Q3

REPORT INFORMATION
  Report Type: 
  Country: None (occurrence: None)
  Receive Date: 20040818
  Receipt Date: 20040730
  Transmission Date: 20050211
  Serious: Yes (Hospitalization, Other)
  Sender: FDA-Public Use
  Company Number: USA040874247

PATIENT
  Age: 81 Year
  Sex: Female

DRUGS (1)
  1. FORTEO [Suspect]
     Indication: OSTEOPOROSIS
     Dates: start: 20040401

REACTIONS (5)
  - CYSTITIS [None]
  - MALAISE [None]
  - POST PROCEDURAL COMPLICATION [None]
  - SYSTEMIC MYCOSIS [None]
  - THROMBOSIS [None]
